FAERS Safety Report 20909032 (Version 2)
Quarter: 2022Q2

REPORT INFORMATION
  Report Type: Report from Study
  Country: US (occurrence: US)
  Receive Date: 20220603
  Receipt Date: 20220616
  Transmission Date: 20220721
  Serious: Yes (Life-Threatening, Hospitalization, Other)
  Sender: FDA-Public Use
  Company Number: US-BoehringerIngelheim-2022-BI-166150

PATIENT
  Age: 62 Year
  Sex: Female

DRUGS (2)
  1. OFEV [Suspect]
     Active Substance: NINTEDANIB
     Indication: Interstitial lung disease
     Route: 048
     Dates: start: 20220407
  2. OFEV [Suspect]
     Active Substance: NINTEDANIB
     Indication: Idiopathic pulmonary fibrosis

REACTIONS (14)
  - Pulmonary embolism [Not Recovered/Not Resolved]
  - Thrombosis [Recovered/Resolved]
  - Platelet count abnormal [Recovered/Resolved]
  - Pulmonary thrombosis [Recovered/Resolved]
  - Thrombosis [Unknown]
  - Pneumonia [Recovered/Resolved]
  - Cough [Not Recovered/Not Resolved]
  - Vomiting [Not Recovered/Not Resolved]
  - Nausea [Not Recovered/Not Resolved]
  - Pneumonia [Recovered/Resolved]
  - Urine output decreased [Not Recovered/Not Resolved]
  - Vomiting [Recovered/Resolved]
  - Diarrhoea [Not Recovered/Not Resolved]
  - Rales [Unknown]

NARRATIVE: CASE EVENT DATE: 20220513
